FAERS Safety Report 21387244 (Version 1)
Quarter: 2022Q3

REPORT INFORMATION
  Report Type: Report from Study
  Country: US (occurrence: US)
  Receive Date: 20220928
  Receipt Date: 20220928
  Transmission Date: 20221027
  Serious: Yes (Other)
  Sender: FDA-Public Use
  Company Number: US-ABBVIE-4132238

PATIENT

DRUGS (1)
  1. SKYRIZI [Suspect]
     Active Substance: RISANKIZUMAB-RZAA
     Indication: Psoriasis
     Dosage: SUBCUTANEOUSLY EVERY 12 WEEKS - STARTING ON WEEK 16
     Route: 058

REACTIONS (3)
  - Aortic aneurysm [Unknown]
  - Chest discomfort [Unknown]
  - Chest pain [Unknown]
